FAERS Safety Report 10452604 (Version 2)
Quarter: 2015Q1

REPORT INFORMATION
  Report Type: Report from Study
  Country: US (occurrence: US)
  Receive Date: 20140915
  Receipt Date: 20150325
  Transmission Date: 20150720
  Serious: Yes (Other)
  Sender: FDA-Public Use
  Company Number: US-BAYER-2014-136371

PATIENT
  Age: 85 Year
  Sex: Male
  Weight: 61.86 kg

DRUGS (3)
  1. XOFIGO [Suspect]
     Active Substance: RADIUM RA-223 DICHLORIDE
     Indication: PROSTATE CANCER METASTATIC
     Dosage: 88.79 MCI
     Route: 042
     Dates: start: 20130926, end: 20130926
  2. ZYTIGA [Concomitant]
     Active Substance: ABIRATERONE ACETATE
  3. XOFIGO [Suspect]
     Active Substance: RADIUM RA-223 DICHLORIDE
     Indication: PROSTATE CANCER METASTATIC
     Dosage: 83.5 MCI
     Route: 042
     Dates: start: 20131028, end: 20131028

REACTIONS (4)
  - Haematocrit decreased [None]
  - White blood cell count decreased [None]
  - Platelet count decreased [None]
  - Haemoglobin decreased [None]

NARRATIVE: CASE EVENT DATE: 20131119
